FAERS Safety Report 7200165-2 (Version None)
Quarter: 2010Q4

REPORT INFORMATION
  Report Type: 
  Country: None (occurrence: None)
  Receive Date: 20101228
  Receipt Date: 20101222
  Transmission Date: 20110411
  Serious: Yes (Life-Threatening, Hospitalization)
  Sender: FDA-Public Use
  Company Number: US-EISAI INC.-E7389-01094-CLI-US

PATIENT
  Sex: Male

DRUGS (5)
  1. E7389 (BOLD) [Suspect]
     Indication: NON-SMALL CELL LUNG CANCER
     Dosage: UNKNOWN
     Route: 041
  2. PEMETREXED [Suspect]
     Indication: NON-SMALL CELL LUNG CANCER
  3. AMBIEN [Concomitant]
     Indication: INSOMNIA
     Route: 048
     Dates: start: 20080815
  4. ALOXI [Concomitant]
     Indication: PREMEDICATION
     Route: 042
     Dates: start: 20101203
  5. ZOCOR [Concomitant]
     Route: 048
     Dates: start: 20101004

REACTIONS (1)
  - PNEUMONIA [None]
